FAERS Safety Report 4761189-8 (Version None)
Quarter: 2005Q3

REPORT INFORMATION
  Report Type: 
  Country: None (occurrence: None)
  Receive Date: 20050901
  Receipt Date: 20050819
  Transmission Date: 20060218
  Serious: Yes (Other)
  Sender: FDA-Public Use
  Company Number: 2005118881

PATIENT
  Age: 88 Year
  Sex: Male
  Weight: 41.5 kg

DRUGS (5)
  1. ZYVOX [Suspect]
     Indication: STAPHYLOCOCCAL INFECTION
     Dosage: 600 MG (UNKNOWN), ORAL
     Route: 048
     Dates: start: 20050728, end: 20050809
  2. CITALOPRAM (CITALOPRAM) [Concomitant]
  3. FOLIC ACID [Concomitant]
  4. CALCICHEW (CALCIUM CARBONATE) [Concomitant]
  5. ENSURE (AMINO ACIDS NOS, MINERALS NOS, VITAMINS NOS) [Concomitant]

REACTIONS (2)
  - HAEMOGLOBIN ABNORMAL [None]
  - MELAENA [None]
